FAERS Safety Report 16054059 (Version 5)
Quarter: 2019Q3

REPORT INFORMATION
  Report Type: Spontaneous
  Country: CA (occurrence: CA)
  Receive Date: 20190308
  Receipt Date: 20190719
  Transmission Date: 20191004
  Serious: Yes (Hospitalization, Other)
  Sender: FDA-Public Use
  Company Number: CA-ASCEND THERAPEUTICS-2063778

PATIENT
  Age: 52 Year
  Sex: Female

DRUGS (10)
  1. GLICLAZIDE [Concomitant]
     Active Substance: GLICLAZIDE
  2. LORATADINE. [Suspect]
     Active Substance: LORATADINE
     Route: 048
  3. ESTROGEL [Suspect]
     Active Substance: ESTRADIOL
     Indication: PRODUCT USE IN UNAPPROVED INDICATION
  4. PRASTERONE (PRASTERONE)?PRODUCT USED FOR UNKNOWN INDICATION [Suspect]
     Active Substance: PRASTERONE
     Route: 067
  5. PROMETRIUM [Suspect]
     Active Substance: PROGESTERONE
  6. BUDESONIDE. [Suspect]
     Active Substance: BUDESONIDE
  7. DEHYDROEPIANDROSTERONE (PRASTERONE)?PRODUCT USED FOR UNKNOWN INDICATIO [Suspect]
     Active Substance: PRASTERONE
     Route: 067
  8. BUDESONIDE. [Concomitant]
     Active Substance: BUDESONIDE
  9. CLARITIN [Concomitant]
     Active Substance: LORATADINE
     Route: 048
  10. CRINONE [Suspect]
     Active Substance: PROGESTERONE

REACTIONS (9)
  - Swelling face [Unknown]
  - Butterfly rash [Unknown]
  - Rash [Unknown]
  - Photosensitivity reaction [Unknown]
  - Tinnitus [Unknown]
  - Cellulitis [Unknown]
  - Feeling hot [Unknown]
  - Periorbital oedema [Unknown]
  - Head discomfort [Unknown]
